FAERS Safety Report 4289758-2 (Version None)
Quarter: 2004Q1

REPORT INFORMATION
  Report Type: 
  Country: None (occurrence: None)
  Receive Date: 20040210
  Receipt Date: 20040204
  Transmission Date: 20041129
  Serious: Yes (Other)
  Sender: FDA-Public Use
  Company Number: US-GLAXOSMITHKLINE-A0496644A

PATIENT
  Age: 38 Year
  Sex: Female

DRUGS (3)
  1. AMERGE [Suspect]
     Indication: MIGRAINE
     Dosage: 2.5MG VARIABLE DOSE
     Route: 048
     Dates: start: 20031001, end: 20040101
  2. LEXAPRO [Concomitant]
  3. TOPAMAX [Concomitant]

REACTIONS (3)
  - AMNESIA [None]
  - DEPRESSION [None]
  - PSYCHOTIC DISORDER [None]
